FAERS Safety Report 15042662 (Version 1)
Quarter: 2018Q2

REPORT INFORMATION
  Report Type: Spontaneous
  Country: US (occurrence: US)
  Receive Date: 20180621
  Receipt Date: 20180621
  Transmission Date: 20180711
  Serious: Yes (Other)
  Sender: FDA-Public Use
  Company Number: US-ORPHAN EUROPE-2049754

PATIENT
  Age: 21 Year
  Sex: Female
  Weight: 132.88 kg

DRUGS (4)
  1. FOLIC ACID. [Concomitant]
     Active Substance: FOLIC ACID
  2. VITAMIN B6 [Concomitant]
     Active Substance: PYRIDOXINE HYDROCHLORIDE
  3. VITAMIN B12 [Concomitant]
     Active Substance: CYANOCOBALAMIN
  4. CYSTADANE [Suspect]
     Active Substance: BETAINE
     Indication: HYPERHOMOCYSTEINAEMIA
     Route: 048
     Dates: start: 2017, end: 2018

REACTIONS (6)
  - Haemoptysis [Not Recovered/Not Resolved]
  - Inappropriate schedule of drug administration [Unknown]
  - Sinus headache [Not Recovered/Not Resolved]
  - Sputum purulent [Not Recovered/Not Resolved]
  - Upper respiratory tract infection [Not Recovered/Not Resolved]
  - Dizziness [Not Recovered/Not Resolved]

NARRATIVE: CASE EVENT DATE: 201805
